FAERS Safety Report 23714900 (Version 1)
Quarter: 2024Q2

REPORT INFORMATION
  Report Type: Spontaneous
  Country: SE (occurrence: SE)
  Receive Date: 20240406
  Receipt Date: 20240406
  Transmission Date: 20240716
  Serious: Yes (Other)
  Sender: FDA-Public Use
  Company Number: None

PATIENT
  Age: 60 Year
  Sex: Male
  Weight: 94 kg

DRUGS (2)
  1. GEMCITABINE [Suspect]
     Active Substance: GEMCITABINE
     Indication: Pancreatic carcinoma
     Dosage: STRENGTH:100 AND 113.85
     Dates: start: 20231109, end: 20240126
  2. ABRAXANE [Concomitant]
     Active Substance: PACLITAXEL
     Dosage: 125MG/M2 GIVEN ONE TIME PER DAY, 3 WEEKS IN A ROW, THEN A BREAK FOR A WEEK, AND SO ON
     Dates: start: 20231109, end: 20240126

REACTIONS (2)
  - Anaemia [Unknown]
  - Pulmonary alveolar haemorrhage [Recovering/Resolving]

NARRATIVE: CASE EVENT DATE: 20240208
